FAERS Safety Report 6824333-4 (Version None)
Quarter: 2010Q3

REPORT INFORMATION
  Report Type: 
  Country: None (occurrence: None)
  Receive Date: 20100708
  Receipt Date: 20100628
  Transmission Date: 20110219
  Serious: Yes (Hospitalization)
  Sender: FDA-Public Use
  Company Number: US-ABBOTT-10P-163-0653902-00

PATIENT
  Age: 56 Year
  Sex: Female

DRUGS (5)
  1. HUMIRA [Suspect]
     Indication: RHEUMATOID ARTHRITIS
     Route: 058
     Dates: start: 20080101, end: 20100427
  2. LEVAQUIN [Suspect]
     Indication: DIVERTICULITIS
     Route: 042
     Dates: start: 20100501, end: 20100501
  3. SAVELLA [Concomitant]
     Indication: RHEUMATOID ARTHRITIS
     Dosage: 12.5 MG DAILY
     Dates: start: 20100603, end: 20100607
  4. SAVELLA [Concomitant]
     Dates: start: 20100607, end: 20100614
  5. SAVELLA [Concomitant]
     Dates: start: 20100614

REACTIONS (11)
  - ABDOMINAL PAIN [None]
  - ASTHENIA [None]
  - BLOOD IRON DECREASED [None]
  - CHEST PAIN [None]
  - CONSTIPATION [None]
  - DEHYDRATION [None]
  - DIARRHOEA [None]
  - DIVERTICULITIS [None]
  - OEDEMA PERIPHERAL [None]
  - URTICARIA [None]
  - VOMITING [None]
